APPROVED DRUG PRODUCT: CYCLOPHOSPHAMIDE
Active Ingredient: CYCLOPHOSPHAMIDE
Strength: 500MG/VIAL
Dosage Form/Route: INJECTABLE;INJECTION
Application: A218632 | Product #001
Applicant: HAINAN POLY PHARM CO LTD
Approved: Dec 26, 2024 | RLD: No | RS: No | Type: DISCN